FAERS Safety Report 25332032 (Version 1)
Quarter: 2025Q2

REPORT INFORMATION
  Report Type: Spontaneous
  Country: GB (occurrence: GB)
  Receive Date: 20250519
  Receipt Date: 20250519
  Transmission Date: 20250717
  Serious: Yes (Other)
  Sender: AMGEN
  Company Number: GB-AMGEN-GBRSP2025095375

PATIENT
  Sex: Male

DRUGS (1)
  1. ARANESP [Suspect]
     Active Substance: DARBEPOETIN ALFA
     Indication: Dialysis
     Dosage: 80 MICROGRAM, Q4WK (80MCG/0.4MI)
     Route: 065
     Dates: start: 20230607, end: 20250110

REACTIONS (1)
  - Dialysis [Recovered/Resolved]
